FAERS Safety Report 7885609-5 (Version None)
Quarter: 2011Q4

REPORT INFORMATION
  Report Type: 
  Country: None (occurrence: None)
  Receive Date: 20111102
  Receipt Date: 20110624
  Transmission Date: 20120403
  Serious: No
  Sender: FDA-Public Use
  Company Number: US-AMGEN-USASP2011032435

PATIENT
  Age: 66 Year
  Sex: Female
  Weight: 74.83 kg

DRUGS (1)
  1. ENBREL [Suspect]

REACTIONS (2)
  - INFECTION [None]
  - INJECTION SITE PAIN [None]
